FAERS Safety Report 8123707-1 (Version None)
Quarter: 2012Q1

REPORT INFORMATION
  Report Type: 
  Country: None (occurrence: None)
  Receive Date: 20120208
  Receipt Date: 20120130
  Transmission Date: 20120608
  Serious: Yes (Hospitalization, Disabling)
  Sender: FDA-Public Use
  Company Number: US-RB-036624-12

PATIENT
  Age: 41 Year
  Sex: Male

DRUGS (7)
  1. VIVITROL [Suspect]
     Indication: DRUG DEPENDENCE
     Dosage: NOT YET RANDOMIZED NOR HAD RECEIVED STUDY DRUG
  2. ALBUTEROL [Concomitant]
     Indication: PRODUCT USED FOR UNKNOWN INDICATION
     Dosage: UNKNOWN
     Route: 065
  3. GLUCOPHAGE [Concomitant]
     Indication: PRODUCT USED FOR UNKNOWN INDICATION
     Dosage: UNKNOWN
     Route: 065
  4. NALOXONE [Suspect]
     Indication: DRUG DEPENDENCE
     Dosage: NOT YET RANDOMIZED NOR HAD RECEIVED STUDY DRUG
  5. LANTUS [Concomitant]
     Indication: PRODUCT USED FOR UNKNOWN INDICATION
     Dosage: UNKNOWN
     Route: 065
  6. SUBOXONE [Suspect]
     Indication: DRUG DEPENDENCE
     Dosage: NOT YET RANDOMIZED NOR HAD RECEIVED STUDY DRUG
     Route: 065
  7. ATENOLOL [Concomitant]
     Indication: PRODUCT USED FOR UNKNOWN INDICATION
     Dosage: UNKNOWN
     Route: 065

REACTIONS (7)
  - SUBCUTANEOUS ABSCESS [None]
  - TREATMENT NONCOMPLIANCE [None]
  - POLYDIPSIA [None]
  - POLYURIA [None]
  - CELLULITIS [None]
  - HYPERGLYCAEMIA [None]
  - LIP PAIN [None]
